FAERS Safety Report 24653468 (Version 1)
Quarter: 2024Q4

REPORT INFORMATION
  Report Type: Spontaneous
  Country: US (occurrence: None)
  Receive Date: 20241121
  Receipt Date: 20241121
  Transmission Date: 20250114
  Serious: No
  Sender: Public
  Company Number: None

PATIENT
  Age: 37 Year
  Sex: Male
  Weight: 48.15 kg

DRUGS (3)
  1. ABILIFY [Suspect]
     Active Substance: ARIPIPRAZOLE
     Indication: Major depression
     Dosage: FREQUENCY : DAILY;?
     Route: 048
     Dates: start: 20240123, end: 20241121
  2. ABILIFY [Suspect]
     Active Substance: ARIPIPRAZOLE
     Indication: Disease recurrence
  3. ABILIFY [Suspect]
     Active Substance: ARIPIPRAZOLE
     Indication: Adjuvant therapy

REACTIONS (2)
  - Adverse drug reaction [None]
  - Gambling disorder [None]

NARRATIVE: CASE EVENT DATE: 20240923
